FAERS Safety Report 19151730 (Version 1)
Quarter: 2021Q2

REPORT INFORMATION
  Report Type: Spontaneous
  Country: CN (occurrence: CN)
  Receive Date: 20210419
  Receipt Date: 20210419
  Transmission Date: 20210717
  Serious: Yes (Other)
  Sender: FDA-Public Use
  Company Number: CN-LUPIN PHARMACEUTICALS INC.-2021-04786

PATIENT
  Sex: Female

DRUGS (3)
  1. OXCARBAZEPINE. [Suspect]
     Active Substance: OXCARBAZEPINE
     Indication: SEVERE MYOCLONIC EPILEPSY OF INFANCY
     Dosage: 20 MILLIGRAM/KILOGRAM, QD?STARTED AT DOL 38, DISCONTINUED AT THE AGE OF 5 MONTHS
     Route: 065
  2. PHENOBARBITAL. [Suspect]
     Active Substance: PHENOBARBITAL
     Indication: SEVERE MYOCLONIC EPILEPSY OF INFANCY
     Dosage: 5 MILLIGRAM/KILOGRAM, QD?STARTED AT DOL 21, DISCONTINUED AT THE AGE OF 5 MONTHS
     Route: 065
  3. LEVETIRACETAM. [Suspect]
     Active Substance: LEVETIRACETAM
     Indication: SEVERE MYOCLONIC EPILEPSY OF INFANCY
     Dosage: 30 MILLIGRAM/KILOGRAM, QD?STARTED AT DOL 29, DISCONTINUED AT THE AGE OF 5 MONTHS
     Route: 065

REACTIONS (1)
  - Drug ineffective [Unknown]
